FAERS Safety Report 9658398 (Version 1)
Quarter: 2013Q4

REPORT INFORMATION
  Report Type: Spontaneous
  Country: US (occurrence: US)
  Receive Date: 20131030
  Receipt Date: 20131030
  Transmission Date: 20140711
  Serious: No
  Sender: FDA-Public Use
  Company Number: US-PURDUE-USA-2012-0084778

PATIENT
  Sex: Male

DRUGS (4)
  1. OXYCONTIN (NDA 22-272) [Suspect]
     Indication: MUSCULOSKELETAL PAIN
     Dosage: 20 MG, Q8H
     Route: 048
     Dates: end: 201109
  2. OXYCONTIN (NDA 22-272) [Suspect]
     Dosage: 10 MG, Q8H
     Route: 048
     Dates: start: 201109, end: 201201
  3. OXYCODONE HCL CR TABLETS (SIMILAR TO NDA 22-272) [Suspect]
     Indication: MUSCULOSKELETAL PAIN
     Dosage: 7 MG, Q8H
     Route: 048
     Dates: start: 20120120, end: 201202
  4. OXYCODONE HCL CR TABLETS (SIMILAR TO NDA 22-272) [Suspect]
     Dosage: 5 MG, Q8H
     Route: 048
     Dates: start: 20120220

REACTIONS (2)
  - Muscle spasms [Unknown]
  - Drug effect decreased [Unknown]
